FAERS Safety Report 7931791-0 (Version None)
Quarter: 2011Q4

REPORT INFORMATION
  Report Type: 
  Country: None (occurrence: None)
  Receive Date: 20111121
  Receipt Date: 20111116
  Transmission Date: 20120403
  Serious: Yes (Other)
  Sender: FDA-Public Use
  Company Number: US-BAYER-2011-111719

PATIENT
  Age: 25 Year
  Sex: Male
  Weight: 102 kg

DRUGS (6)
  1. ASPIRIN [Suspect]
     Indication: ANALGESIC THERAPY
     Dosage: UNK
     Dates: end: 20110101
  2. EXCEDRIN [ACETYLSALICYLIC ACID,CAFFEINE,PARACETAMOL] [Suspect]
     Indication: MIGRAINE
     Dosage: UNK UNK, PRN
     Dates: end: 20110101
  3. IBUPROFEN (ADVIL) [Suspect]
     Indication: HEADACHE
  4. IBUPROFEN (ADVIL) [Suspect]
     Indication: LIMB INJURY
  5. GOODYS [Suspect]
  6. IBUPROFEN (ADVIL) [Suspect]
     Indication: INFLAMMATION
     Dosage: DAILY DOSE 200 MG
     Dates: start: 20110101

REACTIONS (5)
  - FATIGUE [None]
  - ASTHENIA [None]
  - FEELING ABNORMAL [None]
  - NERVOUSNESS [None]
  - RECTAL HAEMORRHAGE [None]
